FAERS Safety Report 5084932-X (Version None)
Quarter: 2006Q3

REPORT INFORMATION
  Report Type: 
  Country: None (occurrence: None)
  Receive Date: 20060815
  Receipt Date: 20060803
  Transmission Date: 20061208
  Serious: Yes (Hospitalization)
  Sender: FDA-Public Use
  Company Number: 163-21880-06080221

PATIENT
  Age: 83 Year
  Sex: Male
  Weight: 25.4014 kg

DRUGS (3)
  1. REVLIMID [Suspect]
     Indication: MULTIPLE MYELOMA
     Dosage: 25 MG QD ORAL
     Route: 048
     Dates: start: 20060712
  2. DEXAMETHASONE TAB [Suspect]
     Indication: MULTIPLE MYELOMA
     Dosage: 40 MG QD ORAL
     Route: 048
  3. BIAXIN [Suspect]
     Indication: MULTIPLE MYELOMA
     Dosage: 500 MG BID ORAL
     Route: 048

REACTIONS (6)
  - DECREASED APPETITE [None]
  - DIZZINESS [None]
  - FALL [None]
  - HYPONATRAEMIA [None]
  - PNEUMONIA [None]
  - RIB FRACTURE [None]
